FAERS Safety Report 5430005-3 (Version None)
Quarter: 2007Q3

REPORT INFORMATION
  Report Type: 
  Country: None (occurrence: None)
  Receive Date: 20070829
  Receipt Date: 20070802
  Transmission Date: 20080115
  Serious: No
  Sender: FDA-Public Use
  Company Number: US-BOEHRINGER INGELHEIM PHARMACEUTICALS, INC.-2007-BP-18797BP

PATIENT

DRUGS (1)
  1. FLOMAX [Suspect]

REACTIONS (3)
  - ASTHENIA [None]
  - DIZZINESS [None]
  - MYALGIA [None]
